FAERS Safety Report 16909616 (Version 2)
Quarter: 2019Q4

REPORT INFORMATION
  Report Type: Spontaneous
  Country: JP (occurrence: JP)
  Receive Date: 20191011
  Receipt Date: 20191119
  Transmission Date: 20200122
  Serious: Yes (Other)
  Sender: FDA-Public Use
  Company Number: JP-GILEAD-2019-0432723

PATIENT
  Age: 49 Year
  Sex: Female

DRUGS (4)
  1. ZEFIX [Suspect]
     Active Substance: LAMIVUDINE
     Indication: CHRONIC HEPATITIS B
     Dosage: 100 MG, QD
     Route: 048
     Dates: start: 1987
  2. HEPSERA [Suspect]
     Active Substance: ADEFOVIR DIPIVOXIL
     Indication: CHRONIC HEPATITIS B
     Dosage: 10 MG, QD
     Route: 048
     Dates: start: 1987
  3. TELMISARTAN. [Concomitant]
     Active Substance: TELMISARTAN
     Dosage: 20 MG, QD
     Route: 048
  4. ENTECAVIR HYDRATE [Concomitant]
     Indication: CHRONIC HEPATITIS B
     Dosage: UNK

REACTIONS (1)
  - Tubulointerstitial nephritis [Recovering/Resolving]
